FAERS Safety Report 20920529 (Version 4)
Quarter: 2024Q4

REPORT INFORMATION
  Report Type: Report from Study
  Country: US (occurrence: US)
  Receive Date: 20220606
  Receipt Date: 20241210
  Transmission Date: 20250114
  Serious: Yes (Hospitalization)
  Sender: ROCHE
  Company Number: US-ROCHE-3110314

PATIENT
  Age: 57 Year
  Sex: Male
  Weight: 154.22 kg

DRUGS (9)
  1. OCREVUS [Suspect]
     Active Substance: OCRELIZUMAB
     Indication: Relapsing-remitting multiple sclerosis
     Dosage: DATE OF TREATMENT: 10/OCT/2019, 21/NOV/2023, 22/NOV/2024.
     Route: 042
     Dates: start: 20151105
  2. GILENYA [Suspect]
     Active Substance: FINGOLIMOD HYDROCHLORIDE
     Indication: Product used for unknown indication
     Route: 065
  3. ASPIRIN [Concomitant]
     Active Substance: ASPIRIN
     Dosage: TAKES TWO BABY ASPIRINS PER DAYS
     Route: 065
     Dates: start: 2021
  4. ATORVASTATIN [Concomitant]
     Active Substance: ATORVASTATIN
  5. DILTIAZEM [Concomitant]
     Active Substance: DILTIAZEM
  6. TADALAFIL [Concomitant]
     Active Substance: TADALAFIL
  7. CHLORTHALIDONE [Concomitant]
     Active Substance: CHLORTHALIDONE
  8. VITAMIN D3 [Concomitant]
     Active Substance: CHOLECALCIFEROL
  9. METAXALONE [Concomitant]
     Active Substance: METAXALONE

REACTIONS (15)
  - Fall [Unknown]
  - Cardiac arrest [Recovered/Resolved]
  - Atrial fibrillation [Unknown]
  - Pain [Unknown]
  - Hypoaesthesia [Not Recovered/Not Resolved]
  - COVID-19 [Recovered/Resolved]
  - Nasopharyngitis [Not Recovered/Not Resolved]
  - Cough [Not Recovered/Not Resolved]
  - Rhinorrhoea [Not Recovered/Not Resolved]
  - Productive cough [Recovered/Resolved]
  - Lower respiratory tract congestion [Recovered/Resolved]
  - Headache [Recovered/Resolved]
  - Fatigue [Recovered/Resolved]
  - Coma [Recovered/Resolved]
  - Dermatitis contact [Not Recovered/Not Resolved]

NARRATIVE: CASE EVENT DATE: 20190901
